FAERS Safety Report 26202657 (Version 1)
Quarter: 2025Q4

REPORT INFORMATION
  Report Type: Spontaneous
  Country: CN (occurrence: CN)
  Receive Date: 20251226
  Receipt Date: 20251226
  Transmission Date: 20260117
  Serious: Yes (Other)
  Sender: Kenvue
  Company Number: CN-KENVUE-20251208259

PATIENT
  Age: 73 Year
  Weight: 65 kg

DRUGS (3)
  1. RHINOCORT [Suspect]
     Active Substance: BUDESONIDE
     Indication: Antiallergic therapy
     Dosage: TWICE A DAY, 2 PUFFS FOR NASAL SPRAY, 2 TIMES/DAY
  2. RHINOCORT [Suspect]
     Active Substance: BUDESONIDE
     Indication: Antiinflammatory therapy
  3. RHINOCORT [Suspect]
     Active Substance: BUDESONIDE
     Indication: Rhinitis allergic

REACTIONS (1)
  - Xerophthalmia [Recovered/Resolved]
